FAERS Safety Report 16802491 (Version 2)
Quarter: 2019Q3

REPORT INFORMATION
  Report Type: Report from Study
  Country: None (occurrence: US)
  Receive Date: 20190912
  Receipt Date: 20190919
  Transmission Date: 20191005
  Serious: Yes (Hospitalization)
  Sender: FDA-Public Use
  Company Number: US-ABBVIE-19P-163-2897942-00

PATIENT
  Age: 25 Year
  Sex: Male
  Weight: 140.5 kg

DRUGS (47)
  1. ABT-263 [Suspect]
     Active Substance: NAVITOCLAX
     Route: 048
     Dates: start: 20190420
  2. DEXAMETHASONE. [Suspect]
     Active Substance: DEXAMETHASONE
     Indication: ACUTE LYMPHOCYTIC LEUKAEMIA RECURRENT
     Dosage: ON DAYS 1-5 AND DAYS 15-19
     Route: 048
     Dates: start: 20190326, end: 20190328
  3. OXYCODONE [Concomitant]
     Active Substance: OXYCODONE
     Indication: PAIN
     Route: 048
     Dates: start: 20190307
  4. METFORMIN [Concomitant]
     Active Substance: METFORMIN HYDROCHLORIDE
     Indication: HYPERGLYCAEMIA
     Route: 048
     Dates: start: 20181116
  5. FIORICET [Concomitant]
     Active Substance: ACETAMINOPHEN\BUTALBITAL\CAFFEINE
     Indication: HEADACHE
     Dosage: DOSE: 50-300-40 MG ?FREQUENCY: PRN
     Route: 048
     Dates: start: 20190325
  6. CARAFATE (SUCRALFATE) [Concomitant]
     Indication: DYSPEPSIA
     Route: 048
     Dates: start: 20190714
  7. IMODIUM (LOPERAMIDE) [Concomitant]
     Indication: DIARRHOEA
     Route: 048
     Dates: start: 20190506
  8. ALLOPURINOL. [Concomitant]
     Active Substance: ALLOPURINOL
     Route: 048
     Dates: start: 20190326, end: 20190326
  9. VENETOCLAX. [Suspect]
     Active Substance: VENETOCLAX
     Route: 048
     Dates: start: 20190313
  10. DEXAMETHASONE. [Suspect]
     Active Substance: DEXAMETHASONE
     Dosage: ON DAYS 1-5 AND DAYS 15-19
     Route: 048
     Dates: start: 20190402, end: 20190427
  11. COMPAZINE [Concomitant]
     Active Substance: PROCHLORPERAZINE MALEATE
     Indication: NAUSEA
  12. DULCOLAX NOS [Concomitant]
     Active Substance: BISACODYL OR DOCUSATE SODIUM
     Indication: CONSTIPATION
     Route: 048
     Dates: start: 20190402
  13. PRILOSEC (OMEPRAZOLE) [Concomitant]
     Active Substance: OMEPRAZOLE MAGNESIUM
     Indication: DYSPEPSIA
     Route: 048
     Dates: start: 20190614
  14. ALLOPURINOL. [Concomitant]
     Active Substance: ALLOPURINOL
     Route: 048
     Dates: start: 20190614
  15. VENETOCLAX. [Suspect]
     Active Substance: VENETOCLAX
     Indication: ACUTE LYMPHOCYTIC LEUKAEMIA RECURRENT
     Route: 048
     Dates: start: 20190312, end: 20190312
  16. DEXAMETHASONE. [Suspect]
     Active Substance: DEXAMETHASONE
     Dosage: ON DAYS 1-5 AND DAYS 15-19
     Route: 048
     Dates: start: 20190607
  17. VINCRISTINE [Suspect]
     Active Substance: VINCRISTINE
     Indication: ACUTE LYMPHOCYTIC LEUKAEMIA RECURRENT
     Dosage: WEEKLY ON DAYS 1,8,15,22
     Route: 042
     Dates: start: 20190326, end: 20190719
  18. VINCRISTINE [Suspect]
     Active Substance: VINCRISTINE
     Dosage: WEEKLY ON DAYS 1,8,15,22
     Route: 042
     Dates: start: 20190802
  19. ZOFRAN [Concomitant]
     Active Substance: ONDANSETRON HYDROCHLORIDE
     Indication: NAUSEA
  20. SENOKOT [Concomitant]
     Active Substance: SENNOSIDES
     Indication: CONSTIPATION
     Dosage: FREQUENCY: NIGHTLY
     Route: 048
     Dates: start: 20190325
  21. TYLENOL [Concomitant]
     Active Substance: ACETAMINOPHEN
     Indication: PYREXIA
  22. TYLENOL [Concomitant]
     Active Substance: ACETAMINOPHEN
     Indication: TRANSFUSION
  23. DEXAMETHASONE. [Suspect]
     Active Substance: DEXAMETHASONE
     Dosage: ON DAYS 1-5 AND DAYS 15-19
     Route: 048
     Dates: start: 20190514, end: 20190518
  24. PROTONIX [Concomitant]
     Active Substance: PANTOPRAZOLE SODIUM
     Indication: PROPHYLAXIS
     Route: 048
     Dates: start: 20190312
  25. ACYCLOVIR. [Concomitant]
     Active Substance: ACYCLOVIR
     Indication: ANTIVIRAL PROPHYLAXIS
     Route: 048
     Dates: start: 20190312
  26. COMPAZINE [Concomitant]
     Active Substance: PROCHLORPERAZINE MALEATE
     Indication: VOMITING
     Dosage: FREQUENCY: EVERY 6-8 HOURS
     Route: 048
     Dates: start: 20190319
  27. OXYCODONE (ROXICODONE) IMMEDIATE RELEASE TABLET [Concomitant]
     Indication: PAIN
     Dosage: FREQUENCY: PRN
     Route: 048
     Dates: start: 20190321
  28. OXYCODONE (ROXICODONE) IMMEDIATE RELEASE TABLET [Concomitant]
     Route: 048
     Dates: start: 20190412
  29. NORMAL SALINE SOLUTION (0.9% SODIUM CHLORIDE) [Concomitant]
     Indication: PROPHYLAXIS
     Route: 042
     Dates: start: 20190314, end: 20190319
  30. DEXAMETHASONE. [Suspect]
     Active Substance: DEXAMETHASONE
     Dosage: ON DAYS 1-5 AND DAYS 15-19
     Route: 048
     Dates: start: 20190328, end: 20190331
  31. DEXAMETHASONE. [Suspect]
     Active Substance: DEXAMETHASONE
     Route: 048
     Dates: start: 20190430, end: 20190504
  32. SCOPOLAMINE [Concomitant]
     Active Substance: SCOPOLAMINE
     Indication: NAUSEA
     Route: 023
     Dates: start: 20190319
  33. SCOPOLAMINE [Concomitant]
     Active Substance: SCOPOLAMINE
     Indication: VOMITING
  34. TRAMADOL (ULTRAM) [Concomitant]
     Indication: PAIN
  35. RESTORIL [Concomitant]
     Active Substance: TEMAZEPAM
     Indication: INSOMNIA
     Dosage: FREQUENCY: NIGHTLY PRN
     Route: 048
     Dates: start: 20190507
  36. ABT-263 [Suspect]
     Active Substance: NAVITOCLAX
     Indication: ACUTE LYMPHOCYTIC LEUKAEMIA RECURRENT
     Route: 048
     Dates: start: 20190314, end: 20190419
  37. ZOFRAN [Concomitant]
     Active Substance: ONDANSETRON HYDROCHLORIDE
     Indication: VOMITING
     Route: 048
     Dates: start: 20190312
  38. TRAMADOL (ULTRAM) [Concomitant]
     Indication: HEADACHE
     Dosage: FREQUENCY: PRN
     Route: 048
     Dates: start: 20190206
  39. NARCAN (NALOXONE) [Concomitant]
     Indication: PROPHYLAXIS
     Route: 030
     Dates: start: 20190307
  40. AMBIEN [Concomitant]
     Active Substance: ZOLPIDEM TARTRATE
     Indication: INSOMNIA
     Dosage: FREQUENCY: NIGHTLY PRN
     Route: 048
     Dates: start: 20190501
  41. XANAX [Concomitant]
     Active Substance: ALPRAZOLAM
     Indication: ANXIETY
     Dosage: FREQUENCY: PRN
     Route: 048
     Dates: start: 20190619
  42. BACTRIM [Concomitant]
     Active Substance: SULFAMETHOXAZOLE\TRIMETHOPRIM
     Indication: ANTIBIOTIC PROPHYLAXIS
     Dosage: DOSE: 800-160 MG
     Route: 048
     Dates: start: 20190312
  43. COLACE [Concomitant]
     Active Substance: DOCUSATE SODIUM
     Indication: CONSTIPATION
     Route: 048
     Dates: start: 20190325
  44. TYLENOL [Concomitant]
     Active Substance: ACETAMINOPHEN
     Indication: PAIN
     Dosage: FREQUENCY: PRN
     Route: 048
     Dates: start: 20190402
  45. KLOR-CON [Concomitant]
     Active Substance: POTASSIUM CHLORIDE
     Indication: HYPOKALAEMIA
     Route: 048
     Dates: start: 20190614
  46. INSULIN LISPRO (HUMALOG) [Concomitant]
     Indication: DIABETES MELLITUS
     Route: 042
     Dates: start: 20190607
  47. ALLOPURINOL. [Concomitant]
     Active Substance: ALLOPURINOL
     Indication: PROPHYLAXIS
     Route: 048
     Dates: start: 20190312, end: 20190315

REACTIONS (1)
  - Lung infection [Recovered/Resolved]

NARRATIVE: CASE EVENT DATE: 20190820
